FAERS Safety Report 9385126 (Version 1)
Quarter: 2013Q2

REPORT INFORMATION
  Report Type: Spontaneous
  Country: US (occurrence: None)
  Receive Date: 20130628
  Receipt Date: 20130628
  Transmission Date: 20140414
  Serious: Yes (Other)
  Sender: FDA-Public Use
  Company Number: 2013-2693

PATIENT
  Sex: 0

DRUGS (1)
  1. DYSPORT (BOTULINUM TOXIN TYPE A) (BOTULINUM TOXIN TYPE A) [Suspect]
     Indication: SKIN COSMETIC PROCEDURE
     Dosage: 1 IN 1 CYCLE (S)

REACTIONS (3)
  - Dysphagia [None]
  - Dyspnoea [None]
  - VIIth nerve paralysis [None]
